FAERS Safety Report 14036701 (Version 1)
Quarter: 2017Q4

REPORT INFORMATION
  Report Type: Report from Study
  Country: US (occurrence: US)
  Receive Date: 20171003
  Receipt Date: 20171003
  Transmission Date: 20180321
  Serious: No
  Sender: FDA-Public Use
  Company Number: US-AMGEN-USASL2017147243

PATIENT
  Sex: Female

DRUGS (1)
  1. ENBREL [Suspect]
     Active Substance: ETANERCEPT
     Indication: RHEUMATOID ARTHRITIS
     Dosage: UNK (UNKNOWN MG ONCE VERY TWO TO THREE WEEKS)
     Route: 065
     Dates: end: 201706

REACTIONS (3)
  - Papule [Unknown]
  - Abdominal pain [Recovered/Resolved]
  - Intentional product misuse [Unknown]
